FAERS Safety Report 10120749 (Version 2)
Quarter: 2014Q2

REPORT INFORMATION
  Report Type: Spontaneous
  Country: JP (occurrence: JP)
  Receive Date: 20140425
  Receipt Date: 20140425
  Transmission Date: 20141212
  Serious: Yes (Other)
  Sender: FDA-Public Use
  Company Number: JP-NAPPMUNDI-GBR-2014-0017834

PATIENT
  Age: 60 Year
  Sex: Female

DRUGS (1)
  1. NORSPAN 5MG [Suspect]
     Indication: NEURALGIA
     Dosage: 5 MCG, Q1H
     Route: 062
     Dates: start: 20140328, end: 20140401

REACTIONS (1)
  - Neoplasm malignant [Unknown]
